FAERS Safety Report 12353877 (Version 1)
Quarter: 2016Q2

REPORT INFORMATION
  Report Type: Spontaneous
  Country: US (occurrence: US)
  Receive Date: 20160511
  Receipt Date: 20160511
  Transmission Date: 20160815
  Serious: No
  Sender: FDA-Public Use
  Company Number: US-JNJFOC-20160423622

PATIENT
  Sex: Female

DRUGS (1)
  1. TRINESSA [Suspect]
     Active Substance: ETHINYL ESTRADIOL\NORGESTIMATE
     Indication: ACNE
     Route: 048
     Dates: start: 201603

REACTIONS (3)
  - Off label use [Unknown]
  - Weight increased [Unknown]
  - Product use issue [Unknown]

NARRATIVE: CASE EVENT DATE: 201603
